FAERS Safety Report 8292615-8 (Version None)
Quarter: 2012Q2

REPORT INFORMATION
  Report Type: 
  Country: None (occurrence: None)
  Receive Date: 20120417
  Receipt Date: 20120312
  Transmission Date: 20120825
  Serious: No
  Sender: FDA-Public Use
  Company Number: US-ASTRAZENECA-2011SE41510

PATIENT
  Age: 56 Year
  Sex: Female

DRUGS (9)
  1. LORCET-HD [Concomitant]
     Indication: OSTEOPOROSIS
  2. NEXIUM [Suspect]
     Indication: GASTROOESOPHAGEAL REFLUX DISEASE
     Route: 048
     Dates: start: 20030101
  3. PREVACID [Concomitant]
  4. SOMA [Concomitant]
     Indication: MUSCLE SPASMS
  5. TAGAMET [Concomitant]
  6. ZANTAC [Concomitant]
  7. LORCET-HD [Concomitant]
     Indication: PAIN
  8. PRILOSEC [Concomitant]
  9. METPROL [Concomitant]
     Indication: HYPERTENSION

REACTIONS (4)
  - PAIN [None]
  - OSTEOPOROSIS [None]
  - DEPRESSION [None]
  - EMOTIONAL DISTRESS [None]
